FAERS Safety Report 15279088 (Version 1)
Quarter: 2018Q3

REPORT INFORMATION
  Report Type: Report from Study
  Country: FR (occurrence: FR)
  Receive Date: 20180815
  Receipt Date: 20180815
  Transmission Date: 20181010
  Serious: Yes (Death)
  Sender: FDA-Public Use
  Company Number: FR-TEVA-2018-FR-940465

PATIENT
  Age: 4 Month
  Sex: Male
  Weight: 6.4 kg

DRUGS (19)
  1. METHYLPREDNISOLONE. [Suspect]
     Active Substance: METHYLPREDNISOLONE
     Indication: FAMILIAL HAEMOPHAGOCYTIC LYMPHOHISTIOCYTOSIS
     Dosage: 2 MILLIGRAM DAILY;
     Route: 042
     Dates: start: 20170603, end: 20170604
  2. BACTRIM [Suspect]
     Active Substance: SULFAMETHOXAZOLE\TRIMETHOPRIM
     Indication: PROPHYLAXIS
     Route: 065
  3. DEXCHLORPHENIRAMINE [Suspect]
     Active Substance: DEXCHLORPHENIRAMINE
     Indication: FAMILIAL HAEMOPHAGOCYTIC LYMPHOHISTIOCYTOSIS
     Dosage: 5 MILLIGRAM DAILY;
     Route: 042
     Dates: start: 20170603, end: 20170604
  4. AMIKACIN. [Concomitant]
     Active Substance: AMIKACIN
     Dosage: 160 MILLIGRAM DAILY;
     Route: 065
     Dates: start: 20170603
  5. METHYLPREDNISOLONE. [Suspect]
     Active Substance: METHYLPREDNISOLONE
     Indication: PREMEDICATION
     Dosage: 2 MILLIGRAM DAILY;
     Route: 042
     Dates: start: 20170603, end: 20170604
  6. CAMPATH [Suspect]
     Active Substance: ALEMTUZUMAB
     Dosage: 6.3 MILLIGRAM DAILY;
     Route: 041
     Dates: start: 20170604, end: 20170604
  7. POLARAMINE [Concomitant]
     Active Substance: DEXCHLORPHENIRAMINE MALEATE
     Indication: PREMEDICATION
     Route: 065
  8. AMIKLIN [Concomitant]
     Active Substance: AMIKACIN SULFATE
     Dosage: 25 MG/KG, 1 DOSAGE FORMS
     Route: 065
     Dates: start: 20170525, end: 20170525
  9. TAZOCILLINE [Concomitant]
     Active Substance: PIPERACILLIN SODIUM\TAZOBACTAM SODIUM
     Dosage: 2500 MILLIGRAM DAILY;
     Route: 042
     Dates: start: 20170603
  10. TAZOCILLINE [Concomitant]
     Active Substance: PIPERACILLIN SODIUM\TAZOBACTAM SODIUM
     Route: 065
     Dates: start: 20170528
  11. CYCLOSPORINE. [Suspect]
     Active Substance: CYCLOSPORINE
     Indication: PREMEDICATION
     Route: 065
  12. NEORAL [Concomitant]
     Active Substance: CYCLOSPORINE
     Dosage: 20 MILLIGRAM DAILY;
     Route: 048
     Dates: start: 20170603
  13. ROCEPHINE [Concomitant]
     Active Substance: CEFTRIAXONE SODIUM
     Route: 065
     Dates: start: 20170525, end: 20170527
  14. PARACETAMOL [Suspect]
     Active Substance: ACETAMINOPHEN
     Indication: FAMILIAL HAEMOPHAGOCYTIC LYMPHOHISTIOCYTOSIS
     Dosage: .03 MILLIGRAM DAILY;
     Route: 042
     Dates: start: 20170603, end: 20170604
  15. VANCOMYCIN [Concomitant]
     Active Substance: VANCOMYCIN
     Route: 065
  16. SOLU?MEDROL [Concomitant]
     Active Substance: METHYLPREDNISOLONE SODIUM SUCCINATE
     Indication: PREMEDICATION
     Dosage: 2 MILLIGRAM
     Route: 065
  17. DEXCHLORPHENIRAMINE [Suspect]
     Active Substance: DEXCHLORPHENIRAMINE
     Indication: PREMEDICATION
     Dosage: 5 MILLIGRAM DAILY;
     Route: 042
     Dates: start: 20170603, end: 20170604
  18. PARACETAMOL [Suspect]
     Active Substance: ACETAMINOPHEN
     Indication: PREMEDICATION
     Dosage: .03 MILLIGRAM DAILY;
     Route: 042
     Dates: start: 20170603, end: 20170604
  19. CAMPATH [Suspect]
     Active Substance: ALEMTUZUMAB
     Indication: FAMILIAL HAEMOPHAGOCYTIC LYMPHOHISTIOCYTOSIS
     Dosage: 3.3 MILLIGRAM DAILY;
     Route: 041
     Dates: start: 20170603, end: 20170603

REACTIONS (1)
  - Anaphylactic shock [Fatal]

NARRATIVE: CASE EVENT DATE: 20170603
